FAERS Safety Report 5135538-5 (Version None)
Quarter: 2006Q4

REPORT INFORMATION
  Report Type: 
  Country: None (occurrence: None)
  Receive Date: 20061026
  Receipt Date: 20061016
  Transmission Date: 20070319
  Serious: Yes (Hospitalization)
  Sender: FDA-Public Use
  Company Number: AU-BAYER-200614942GDS

PATIENT
  Age: 35 Year

DRUGS (3)
  1. VERAPAMIL [Suspect]
     Indication: DRUG USE FOR UNKNOWN INDICATION
     Route: 048
  2. NIFEDIPINE [Suspect]
     Indication: DRUG USE FOR UNKNOWN INDICATION
     Route: 048
  3. CAPTOPRIL [Suspect]
     Indication: DRUG USE FOR UNKNOWN INDICATION
     Route: 048

REACTIONS (5)
  - BRADYCARDIA [None]
  - DIALYSIS [None]
  - DRUG LEVEL ABOVE THERAPEUTIC [None]
  - HYPOTENSION [None]
  - PULMONARY OEDEMA [None]
